FAERS Safety Report 18387893 (Version 3)
Quarter: 2020Q4

REPORT INFORMATION
  Report Type: Report from Study
  Country: CA (occurrence: CA)
  Receive Date: 20201015
  Receipt Date: 20201102
  Transmission Date: 20210114
  Serious: Yes (Hospitalization, Other)
  Sender: FDA-Public Use
  Company Number: CA-JNJFOC-20201016228

PATIENT
  Age: 31 Year
  Sex: Female
  Weight: 54.6 kg

DRUGS (1)
  1. REMICADE [Suspect]
     Active Substance: INFLIXIMAB
     Indication: CROHN^S DISEASE
     Dosage: 10MG/KG
     Route: 042
     Dates: start: 20190906, end: 20201022

REACTIONS (4)
  - Pallor [Unknown]
  - Clostridium difficile infection [Recovering/Resolving]
  - Drug ineffective [Unknown]
  - Crohn^s disease [Not Recovered/Not Resolved]

NARRATIVE: CASE EVENT DATE: 20201008
